FAERS Safety Report 7122125-2 (Version None)
Quarter: 2010Q4

REPORT INFORMATION
  Report Type: 
  Country: None (occurrence: None)
  Receive Date: 20101124
  Receipt Date: 20101119
  Transmission Date: 20110411
  Serious: Yes (Hospitalization)
  Sender: FDA-Public Use
  Company Number: US-US-EMD SERONO, INC.-7025579

PATIENT
  Sex: Female
  Weight: 91 kg

DRUGS (4)
  1. REBIF [Suspect]
     Indication: MULTIPLE SCLEROSIS
     Route: 058
     Dates: start: 20090413, end: 20090501
  2. XANAX [Concomitant]
     Indication: ANXIETY
  3. CELEXA [Concomitant]
     Indication: DEPRESSION
  4. PROVIGIL [Concomitant]
     Indication: MULTIPLE SCLEROSIS

REACTIONS (2)
  - CARDIAC DISORDER [None]
  - MYOCARDIAL INFARCTION [None]
